FAERS Safety Report 15217410 (Version 1)
Quarter: 2018Q3

REPORT INFORMATION
  Report Type: Spontaneous
  Country: US (occurrence: US)
  Receive Date: 20180703
  Receipt Date: 20180703
  Transmission Date: 20181010
  Serious: No
  Sender: FDA-Public Use
  Company Number: None

PATIENT
  Age: 69 Year
  Sex: Male
  Weight: 100 kg

DRUGS (1)
  1. EVOLOCUMAB [Suspect]
     Active Substance: EVOLOCUMAB
     Route: 058
     Dates: start: 20170724, end: 20180410

REACTIONS (2)
  - Rash [None]
  - Vasculitis [None]

NARRATIVE: CASE EVENT DATE: 20180410
